FAERS Safety Report 5448793-9 (Version None)
Quarter: 2007Q3

REPORT INFORMATION
  Report Type: 
  Country: None (occurrence: None)
  Receive Date: 20070911
  Receipt Date: 20070613
  Transmission Date: 20080115
  Serious: No
  Sender: FDA-Public Use
  Company Number: US-BRISTOL-MYERS SQUIBB COMPANY-13813399

PATIENT
  Sex: Female
  Weight: 77 kg

DRUGS (6)
  1. EMSAM [Suspect]
     Route: 062
  2. LEVOTHYROXINE SODIUM [Concomitant]
  3. INDERAL [Concomitant]
  4. LIPITOR [Concomitant]
  5. SEROQUEL [Concomitant]
  6. LORAZEPAM [Concomitant]

REACTIONS (1)
  - RASH [None]
